FAERS Safety Report 9764688 (Version 1)
Quarter: 2013Q4

REPORT INFORMATION
  Report Type: Spontaneous
  Country: US (occurrence: None)
  Receive Date: 20131216
  Receipt Date: 20131216
  Transmission Date: 20140711
  Serious: Yes (Other)
  Sender: FDA-Public Use
  Company Number: None

PATIENT
  Age: 1 Year
  Sex: Male
  Weight: 11.34 kg

DRUGS (1)
  1. ALBUTEROL SULFATE INHALATION SOLUTION 0.083% [Suspect]
     Indication: ASTHMA
     Dosage: 1/2 VIAL EVERY 4-6 HRS.
     Route: 055
     Dates: start: 20131007, end: 20131017

REACTIONS (4)
  - Malaise [None]
  - Sinusitis [None]
  - Product quality issue [None]
  - No reaction on previous exposure to drug [None]
